FAERS Safety Report 15238342 (Version 1)
Quarter: 2018Q3

REPORT INFORMATION
  Report Type: Spontaneous
  Country: US (occurrence: US)
  Receive Date: 20180710
  Receipt Date: 20180710
  Transmission Date: 20181010
  Serious: No
  Sender: FDA-Public Use
  Company Number: None

PATIENT
  Age: 15 Year
  Sex: Male
  Weight: 76.3 kg

DRUGS (10)
  1. HYDRALAZINE [Concomitant]
     Active Substance: HYDRALAZINE HYDROCHLORIDE
  2. PREDNISONE. [Suspect]
     Active Substance: PREDNISONE
     Dates: end: 20150529
  3. CYTARABINE. [Suspect]
     Active Substance: CYTARABINE
     Dates: end: 20150620
  4. CYCLOPHOSPHAMIDE. [Suspect]
     Active Substance: CYCLOPHOSPHAMIDE
     Dates: end: 20150627
  5. PHENERGAN [Concomitant]
     Active Substance: PROMETHAZINE HYDROCHLORIDE
  6. FLEXERIL [Concomitant]
     Active Substance: CYCLOBENZAPRINE HYDROCHLORIDE
  7. MORPHINE [Concomitant]
     Active Substance: MORPHINE
  8. METHOTREXATE. [Suspect]
     Active Substance: METHOTREXATE
     Dates: end: 20150620
  9. VINCRISTINE SULFATE. [Suspect]
     Active Substance: VINCRISTINE SULFATE
     Dates: end: 20150627
  10. BENADRYL [Concomitant]
     Active Substance: DIPHENHYDRAMINE HYDROCHLORIDE

REACTIONS (5)
  - Aggression [None]
  - Arachnoid cyst [None]
  - Pruritus [None]
  - Posterior reversible encephalopathy syndrome [None]
  - Seizure [None]

NARRATIVE: CASE EVENT DATE: 20150629
